FAERS Safety Report 7623778-2 (Version None)
Quarter: 2011Q3

REPORT INFORMATION
  Report Type: 
  Country: None (occurrence: None)
  Receive Date: 20110720
  Receipt Date: 20110608
  Transmission Date: 20111222
  Serious: Yes (Hospitalization)
  Sender: FDA-Public Use
  Company Number: US-GLAXOSMITHKLINE-Z0002568C

PATIENT
  Age: 80 Year
  Sex: Male
  Weight: 65 kg

DRUGS (4)
  1. BLINDED TRIAL MEDICATION [Suspect]
     Indication: CORONARY ARTERY DISEASE
     Route: 048
     Dates: start: 20090413
  2. COREG [Suspect]
     Indication: HYPERTENSION
     Dosage: 6.25MG PER DAY
     Route: 048
     Dates: start: 20110301, end: 20110522
  3. LISINOPRIL [Suspect]
     Indication: HYPERTENSION
     Dosage: 5MG PER DAY
     Route: 048
     Dates: start: 20110201, end: 20110522
  4. SPIRONOLACTONE [Suspect]
     Indication: OEDEMA
     Dosage: 25MG PER DAY
     Route: 048
     Dates: start: 20110301, end: 20110522

REACTIONS (4)
  - RENAL FAILURE CHRONIC [None]
  - URINARY TRACT INFECTION [None]
  - DEHYDRATION [None]
  - HYPERKALAEMIA [None]
